FAERS Safety Report 21984896 (Version 1)
Quarter: 2023Q1

REPORT INFORMATION
  Report Type: Spontaneous
  Country: US (occurrence: US)
  Receive Date: 20230213
  Receipt Date: 20230213
  Transmission Date: 20230417
  Serious: Yes (Life-Threatening, Hospitalization)
  Sender: FDA-Public Use
  Company Number: US-MYLANLABS-2023M1014968

PATIENT
  Age: 68 Year
  Sex: Male

DRUGS (7)
  1. ROCURONIUM [Suspect]
     Active Substance: ROCURONIUM BROMIDE
     Indication: Neuromuscular blocking therapy
     Dosage: UNK
     Route: 058
  2. ROCURONIUM [Suspect]
     Active Substance: ROCURONIUM BROMIDE
     Indication: Endotracheal intubation
  3. KETAMINE [Concomitant]
     Active Substance: KETAMINE
     Indication: Neuromuscular blocking therapy
     Dosage: UNK
     Route: 065
  4. KETAMINE [Concomitant]
     Active Substance: KETAMINE
     Indication: Endotracheal intubation
  5. MIDAZOLAM [Concomitant]
     Active Substance: MIDAZOLAM
     Indication: Neuromuscular blocking therapy
     Dosage: UNK
     Route: 065
  6. MIDAZOLAM [Concomitant]
     Active Substance: MIDAZOLAM
     Indication: Endotracheal intubation
  7. EPINEPHRINE [Concomitant]
     Active Substance: EPINEPHRINE
     Indication: Hypotension
     Dosage: UNK, EPINEPHRINE VIA INTEROSSEOUS ACCESS
     Route: 065

REACTIONS (1)
  - Neuromuscular blockade [Recovering/Resolving]
